FAERS Safety Report 7530517-2 (Version None)
Quarter: 2011Q2

REPORT INFORMATION
  Report Type: 
  Country: None (occurrence: None)
  Receive Date: 20110607
  Receipt Date: 20110525
  Transmission Date: 20111010
  Serious: Yes (Other)
  Sender: FDA-Public Use
  Company Number: CA-BAYER-2011-045850

PATIENT
  Age: 15 Year
  Sex: Male

DRUGS (2)
  1. ACETYLSALICYLIC ACID SRT [Suspect]
     Indication: CEREBROVASCULAR ACCIDENT
     Dosage: UNK
  2. WARFARIN SODIUM [Suspect]
     Indication: THROMBOSIS PROPHYLAXIS
     Dosage: UNK

REACTIONS (1)
  - MUSCLE HAEMORRHAGE [None]
